FAERS Safety Report 4318166-0 (Version None)
Quarter: 2004Q1

REPORT INFORMATION
  Report Type: 
  Country: None (occurrence: None)
  Receive Date: 20040317
  Receipt Date: 20040308
  Transmission Date: 20041129
  Serious: Yes (Death, Life-Threatening, Hospitalization)
  Sender: FDA-Public Use
  Company Number: GB-ROCHE-361144

PATIENT
  Age: 65 Year
  Sex: Female

DRUGS (7)
  1. ORLISTAT [Suspect]
     Indication: OBESITY
     Route: 048
     Dates: start: 20031015, end: 20031125
  2. RAMIPRIL [Concomitant]
     Indication: HYPERTENSION
     Route: 065
     Dates: end: 20031125
  3. BENDROFLUAZIDE [Concomitant]
     Indication: HYPERTENSION
     Route: 065
     Dates: end: 20031125
  4. TOLTERODINE [Concomitant]
     Indication: URINARY INCONTINENCE
     Route: 065
     Dates: end: 20031126
  5. ASPIRIN [Concomitant]
     Indication: ANTICOAGULANT THERAPY
     Route: 065
  6. BEZAFIBRATE [Concomitant]
     Route: 065
     Dates: end: 20031125
  7. NIFEDIPINE [Concomitant]
     Indication: HYPERTENSION
     Route: 065
     Dates: end: 20031125

REACTIONS (1)
  - PANCREATITIS NECROTISING [None]
